APPROVED DRUG PRODUCT: THYROSHIELD
Active Ingredient: POTASSIUM IODIDE
Strength: 65MG/ML
Dosage Form/Route: SOLUTION;ORAL
Application: A077218 | Product #001
Applicant: ARCO PHARMACEUTICALS LLC
Approved: Jan 12, 2005 | RLD: No | RS: No | Type: DISCN